FAERS Safety Report 4772133-1 (Version None)
Quarter: 2005Q3

REPORT INFORMATION
  Report Type: 
  Country: None (occurrence: None)
  Receive Date: 20050919
  Receipt Date: 20050908
  Transmission Date: 20060218
  Serious: Yes (Other)
  Sender: FDA-Public Use
  Company Number: FR-NOVOPROD-246821

PATIENT
  Age: 10 Year
  Sex: Male

DRUGS (3)
  1. MIXTARD HUMAN 70/30 [Suspect]
     Indication: DIABETES MELLITUS INSULIN-DEPENDENT
     Dates: start: 19980101
  2. VELOSULIN [Concomitant]
     Indication: DIABETES MELLITUS INSULIN-DEPENDENT
     Route: 058
     Dates: start: 19990101
  3. HUMALOG [Concomitant]
     Indication: DIABETES MELLITUS INSULIN-DEPENDENT

REACTIONS (1)
  - LIPOATROPHY [None]
